FAERS Safety Report 9528425 (Version 1)
Quarter: 2013Q3

REPORT INFORMATION
  Report Type: Spontaneous
  Country: FR (occurrence: None)
  Receive Date: 20130913
  Receipt Date: 20130913
  Transmission Date: 20140515
  Serious: No
  Sender: FDA-Public Use
  Company Number: AXC-2013-000458

PATIENT
  Age: 48 Year
  Sex: Female

DRUGS (4)
  1. SUCRALFATE [Suspect]
     Indication: PRODUCT USED FOR UNKNOWN INDICATION
     Route: 048
     Dates: start: 20130725, end: 20130806
  2. LASILIX [Suspect]
     Indication: PRODUCT USED FOR UNKNOWN INDICATION
     Route: 048
     Dates: start: 20130726, end: 20130808
  3. LOPRIL [Suspect]
     Route: 048
     Dates: start: 20130729, end: 20130807
  4. VANCOMYCINE [Suspect]
     Indication: PRODUCT USED FOR UNKNOWN INDICATION
     Route: 042
     Dates: start: 20130728, end: 20130807

REACTIONS (1)
  - Agranulocytosis [None]
